FAERS Safety Report 5839995-8 (Version None)
Quarter: 2008Q3

REPORT INFORMATION
  Report Type: 
  Country: None (occurrence: None)
  Receive Date: 20080811
  Receipt Date: 20080804
  Transmission Date: 20090109
  Serious: Yes (Life-Threatening, Other)
  Sender: FDA-Public Use
  Company Number: US-KINGPHARMUSA00001-K200800917

PATIENT

DRUGS (1)
  1. ALTACE [Suspect]

REACTIONS (3)
  - DYSPNOEA [None]
  - MYOCARDIAL INFARCTION [None]
  - THROAT TIGHTNESS [None]
